FAERS Safety Report 18974278 (Version 1)
Quarter: 2021Q1

REPORT INFORMATION
  Report Type: Spontaneous
  Country: FR (occurrence: FR)
  Receive Date: 20210305
  Receipt Date: 20210305
  Transmission Date: 20210420
  Serious: Yes (Other)
  Sender: FDA-Public Use
  Company Number: FR-PFIZER INC-2021202675

PATIENT
  Age: 36 Year
  Sex: Female
  Weight: 63 kg

DRUGS (3)
  1. CYTARABINE ACCORD [Suspect]
     Active Substance: CYTARABINE
     Dosage: UNK
     Dates: end: 20210121
  2. ZAVEDOS [Suspect]
     Active Substance: IDARUBICIN
     Indication: ACUTE MYELOID LEUKAEMIA
     Dosage: 21 MG, 1X/DAY, DAY 1 TO DAY 3
     Route: 041
     Dates: start: 20210116, end: 20210118
  3. CYTARABINE ACCORD [Suspect]
     Active Substance: CYTARABINE
     Indication: ACUTE MYELOID LEUKAEMIA
     Dosage: 360 MG, 1X/DAY, DAY 1 TO DAY 7
     Route: 041
     Dates: start: 20210116

REACTIONS (1)
  - Toxic skin eruption [Recovered/Resolved]

NARRATIVE: CASE EVENT DATE: 20210119
